FAERS Safety Report 8976659 (Version 2)
Quarter: 2014Q3

REPORT INFORMATION
  Report Type: Report from Study
  Country: US (occurrence: US)
  Receive Date: 20121220
  Receipt Date: 20140924
  Transmission Date: 20150326
  Serious: Yes (Hospitalization)
  Sender: FDA-Public Use
  Company Number: US-MPIJNJ-2012-08994

PATIENT
  Age: 67 Year
  Weight: 88.44 kg

DRUGS (2)
  1. DEXAMETHASONE. [Suspect]
     Active Substance: DEXAMETHASONE
     Indication: PLASMA CELL MYELOMA
     Dosage: 40 MG, DAILY ON DAYS 1-4 AND 9-12 EVERY 21 DAYS
     Route: 048
     Dates: start: 20100901, end: 20101004
  2. VELCADE [Suspect]
     Active Substance: BORTEZOMIB
     Indication: PLASMA CELL MYELOMA
     Dosage: 2.6 MG, 2 TIMES WEEKLY, DAYS 1 AND 5 Q7 DAYS, 1 WEEK OFF
     Route: 042
     Dates: start: 20100901, end: 20101004

REACTIONS (7)
  - Thrombocytopenia [Unknown]
  - Anaemia [Unknown]
  - Dizziness [Unknown]
  - Chills [Unknown]
  - Asthenia [Unknown]
  - Coronary artery disease [Unknown]
  - Mental status changes [Unknown]

NARRATIVE: CASE EVENT DATE: 20101006
